FAERS Safety Report 5536240-8 (Version None)
Quarter: 2007Q4

REPORT INFORMATION
  Report Type: 
  Country: None (occurrence: None)
  Receive Date: 20071206
  Receipt Date: 20071124
  Transmission Date: 20080405
  Serious: Yes (Other)
  Sender: FDA-Public Use
  Company Number: US-PFIZER INC-2007088951

PATIENT
  Sex: Female

DRUGS (5)
  1. DILANTIN [Suspect]
  2. DILANTIN [Suspect]
  3. CLONAZEPAM [Concomitant]
  4. LEXAPRO [Concomitant]
  5. THYROID TAB [Concomitant]

REACTIONS (1)
  - CONVULSION [None]
